FAERS Safety Report 9717295 (Version 1)
Quarter: 2013Q4

REPORT INFORMATION
  Report Type: Spontaneous
  Country: GB (occurrence: GB)
  Receive Date: 20131127
  Receipt Date: 20131127
  Transmission Date: 20140711
  Serious: Yes (Other)
  Sender: FDA-Public Use
  Company Number: GB-GLAXOSMITHKLINE-B0948439A

PATIENT
  Age: 68 Year
  Sex: Male

DRUGS (4)
  1. ORLISTAT [Suspect]
     Indication: PRODUCT USED FOR UNKNOWN INDICATION
     Dosage: 120MG THREE TIMES PER DAY
     Route: 065
     Dates: start: 2007, end: 201101
  2. QUETIAPINE [Concomitant]
  3. TEMAZEPAM [Concomitant]
  4. TERAZOSIN [Concomitant]

REACTIONS (1)
  - Renal impairment [Recovered/Resolved]
